FAERS Safety Report 7256926-7 (Version None)
Quarter: 2011Q1

REPORT INFORMATION
  Report Type: 
  Country: None (occurrence: None)
  Receive Date: 20110129
  Receipt Date: 20100701
  Transmission Date: 20110831
  Serious: No
  Sender: FDA-Public Use
  Company Number: US-ABBOTT-10P-163-0655354-00

PATIENT
  Sex: Male
  Weight: 77.18 kg

DRUGS (1)
  1. HUMIRA [Suspect]
     Indication: ANKYLOSING SPONDYLITIS
     Dosage: ONE SHOT ONLY
     Route: 058
     Dates: start: 20091001, end: 20091001

REACTIONS (4)
  - HYPERTENSION [None]
  - AGITATION [None]
  - HEADACHE [None]
  - VISION BLURRED [None]
